FAERS Safety Report 24050506 (Version 1)
Quarter: 2024Q3

REPORT INFORMATION
  Report Type: Spontaneous
  Country: US (occurrence: US)
  Receive Date: 20240704
  Receipt Date: 20240704
  Transmission Date: 20241016
  Serious: Yes (Death, Other)
  Sender: AMGEN
  Company Number: US-AMGEN-USASP2024128236

PATIENT
  Age: 45 Year
  Sex: Male

DRUGS (4)
  1. RITUXIMAB [Suspect]
     Active Substance: RITUXIMAB
     Indication: Meningitis aseptic
     Dosage: UNK
     Route: 065
  2. CYCLOPHOSPHAMIDE [Concomitant]
     Active Substance: CYCLOPHOSPHAMIDE
     Indication: Meningitis aseptic
     Dosage: UNK
     Route: 065
  3. METHOTREXATE [Concomitant]
     Active Substance: METHOTREXATE
     Indication: Meningitis aseptic
     Dosage: UNK
     Route: 065
  4. TECLISTAMAB [Concomitant]
     Active Substance: TECLISTAMAB
     Indication: Meningitis aseptic
     Dosage: UNK
     Route: 065

REACTIONS (4)
  - Death [Fatal]
  - Encephalomyelitis [Unknown]
  - Drug ineffective for unapproved indication [Unknown]
  - Off label use [Unknown]
